FAERS Safety Report 11755377 (Version 3)
Quarter: 2016Q1

REPORT INFORMATION
  Report Type: Spontaneous
  Country: SI (occurrence: SI)
  Receive Date: 20151119
  Receipt Date: 20160105
  Transmission Date: 20160525
  Serious: Yes (Hospitalization, Other)
  Sender: FDA-Public Use
  Company Number: SI-INCYTE CORPORATION-2015IN005908

PATIENT
  Age: 77 Year
  Sex: Female

DRUGS (3)
  1. URUTAL [Concomitant]
     Indication: PRODUCT USED FOR UNKNOWN INDICATION
     Route: 065
  2. JAKAFI [Suspect]
     Active Substance: RUXOLITINIB
     Indication: PRIMARY MYELOFIBROSIS
     Dosage: 40 MG, QD (2X20 MG/DAY)
     Route: 065
     Dates: start: 201312
  3. URUTAL [Concomitant]
     Route: 065

REACTIONS (8)
  - Primary myelofibrosis [Recovering/Resolving]
  - Dementia [Unknown]
  - Vertigo [Unknown]
  - Splenomegaly [Recovering/Resolving]
  - Contusion [Unknown]
  - Abnormal behaviour [Unknown]
  - Psychotic disorder [Unknown]
  - Weight increased [Unknown]

NARRATIVE: CASE EVENT DATE: 2013
